FAERS Safety Report 5345643-6 (Version None)
Quarter: 2007Q2

REPORT INFORMATION
  Report Type: 
  Country: None (occurrence: None)
  Receive Date: 20070605
  Receipt Date: 20070320
  Transmission Date: 20071010
  Serious: No
  Sender: FDA-Public Use
  Company Number: US-ASTRAZENECA-2007UW05522

PATIENT
  Sex: Male

DRUGS (3)
  1. PRILOSEC [Suspect]
     Route: 048
  2. PEPCID [Concomitant]
  3. NEXIUM [Concomitant]
     Route: 048

REACTIONS (2)
  - ILL-DEFINED DISORDER [None]
  - VOMITING [None]
